FAERS Safety Report 11062459 (Version 1)
Quarter: 2015Q2

REPORT INFORMATION
  Report Type: Spontaneous
  Country: US (occurrence: None)
  Receive Date: 20150423
  Receipt Date: 20150423
  Transmission Date: 20150821
  Serious: Yes (Life-Threatening)
  Sender: FDA-Public Use
  Company Number: None

PATIENT
  Age: 83 Year
  Sex: Male

DRUGS (8)
  1. ZYTIGA [Suspect]
     Active Substance: ABIRATERONE ACETATE
     Indication: PROSTATE CANCER
     Dosage: 250MG, 3 TABS ONCE DAILY, PO
     Route: 048
     Dates: start: 20140806
  2. PREDNISONE. [Suspect]
     Active Substance: PREDNISONE
     Indication: PROSTATE CANCER
     Dosage: 5MG, 1 TAB BID, PO
     Route: 048
     Dates: start: 20140806
  3. OXYCODONE [Concomitant]
     Active Substance: OXYCODONE
  4. LATANOPROST. [Concomitant]
     Active Substance: LATANOPROST
  5. FISH OIL [Concomitant]
     Active Substance: FISH OIL
  6. DORZOLAMIDE [Concomitant]
     Active Substance: DORZOLAMIDE
  7. FLOMAX [Concomitant]
     Active Substance: TAMSULOSIN HYDROCHLORIDE
  8. VITAMIN B12 [Concomitant]
     Active Substance: CYANOCOBALAMIN

REACTIONS (1)
  - Optic ischaemic neuropathy [None]
